FAERS Safety Report 24878266 (Version 1)
Quarter: 2025Q1

REPORT INFORMATION
  Report Type: Spontaneous
  Country: NL (occurrence: NL)
  Receive Date: 20250123
  Receipt Date: 20250123
  Transmission Date: 20250408
  Serious: Yes (Hospitalization, Other)
  Sender: ALEXION PHARMACEUTICALS
  Company Number: NL-ASTRAZENECA-202501GLO015053NL

PATIENT
  Age: 91 Year
  Weight: 73 kg

DRUGS (8)
  1. QUETIAPINE FUMARATE [Suspect]
     Active Substance: QUETIAPINE FUMARATE
     Indication: Sleep disorder
  2. ASPIRIN [Concomitant]
     Active Substance: ASPIRIN
  3. BUMETANIDE [Concomitant]
     Active Substance: BUMETANIDE
  4. HYLAN POISON IVY/OAK [Concomitant]
     Route: 065
  5. POLYETHYLENE GLYCOLS [Concomitant]
     Active Substance: POLYETHYLENE GLYCOLS
     Route: 065
  6. PANTOPRAZOL ACCORD [Concomitant]
     Route: 065
  7. ROSUVASTATIN [Concomitant]
     Active Substance: ROSUVASTATIN
     Route: 065
  8. ISORDIL [Concomitant]
     Active Substance: ISOSORBIDE DINITRATE

REACTIONS (4)
  - Cardiac failure [Unknown]
  - Renal impairment [Unknown]
  - Infection [Unknown]
  - Off label use [Recovered/Resolved]
